FAERS Safety Report 10383499 (Version 2)
Quarter: 2014Q3

REPORT INFORMATION
  Report Type: Spontaneous
  Country: FR (occurrence: FR)
  Receive Date: 20140814
  Receipt Date: 20140826
  Transmission Date: 20150326
  Serious: Yes (Hospitalization, Other)
  Sender: FDA-Public Use
  Company Number: FR-PFIZER INC-2014222387

PATIENT
  Age: 33 Year
  Sex: Male

DRUGS (3)
  1. VALIUM [Suspect]
     Active Substance: DIAZEPAM
     Indication: PAIN
     Dosage: 8 DF, SINGLE
     Route: 048
     Dates: start: 20140511, end: 20140511
  2. LYRICA [Suspect]
     Active Substance: PREGABALIN
     Indication: PAIN
     Dosage: 6 DF, SINGLE
     Route: 048
     Dates: start: 20140511, end: 20140511
  3. LEXOMIL ROCHE [Suspect]
     Active Substance: BROMAZEPAM
     Indication: SLEEP DISORDER
     Dosage: SEVERAL TABLETS IN ONE SINGLE INTAKE
     Route: 048
     Dates: start: 20140511, end: 20140511

REACTIONS (7)
  - Hypotension [Recovering/Resolving]
  - Somnolence [Recovered/Resolved]
  - Intentional overdose [Unknown]
  - Pneumonia aspiration [Recovered/Resolved]
  - Vomiting [Unknown]
  - Toxicity to various agents [Unknown]
  - Sepsis [Unknown]

NARRATIVE: CASE EVENT DATE: 20140511
